FAERS Safety Report 18698317 (Version 1)
Quarter: 2021Q1

REPORT INFORMATION
  Report Type: Spontaneous
  Country: US (occurrence: US)
  Receive Date: 20210104
  Receipt Date: 20210104
  Transmission Date: 20210419
  Serious: Yes (Other)
  Sender: FDA-Public Use
  Company Number: US-BEH-2020126708

PATIENT
  Age: 27 Year
  Sex: Female

DRUGS (4)
  1. HAEGARDA [Suspect]
     Active Substance: HUMAN C1-ESTERASE INHIBITOR
     Indication: PROPHYLAXIS
  2. HAEGARDA [Suspect]
     Active Substance: HUMAN C1-ESTERASE INHIBITOR
     Indication: HEREDITARY ANGIOEDEMA
     Dosage: 7000 INTERNATIONAL UNIT, BIW
     Route: 058
     Dates: start: 2020
  3. PRENATAL [FOLIC ACID;IRON] [Concomitant]
     Active Substance: FOLIC ACID\IRON\MINERALS\VITAMINS
     Route: 065
  4. VITAMIN B6 [Concomitant]
     Active Substance: PYRIDOXINE HYDROCHLORIDE
     Route: 065

REACTIONS (4)
  - COVID-19 [Unknown]
  - Feeling hot [Unknown]
  - Hereditary angioedema [Unknown]
  - Stress [Unknown]

NARRATIVE: CASE EVENT DATE: 20201121
